FAERS Safety Report 8605414-1 (Version None)
Quarter: 2012Q3

REPORT INFORMATION
  Report Type: 
  Country: None (occurrence: None)
  Receive Date: 20120820
  Receipt Date: 20120813
  Transmission Date: 20120928
  Serious: Yes (Death, Other)
  Sender: FDA-Public Use
  Company Number: US-CELGENEUS-163-21880-11101372

PATIENT
  Sex: Female

DRUGS (1)
  1. REVLIMID [Suspect]
     Indication: NEUROENDOCRINE CARCINOMA
     Dosage: 20 MILLIGRAM
     Route: 048
     Dates: start: 20110602, end: 20110921

REACTIONS (3)
  - PLATELET COUNT DECREASED [None]
  - DEATH [None]
  - NEUROENDOCRINE CARCINOMA [None]
